FAERS Safety Report 9408489 (Version 1)
Quarter: 2013Q3

REPORT INFORMATION
  Report Type: Spontaneous
  Country: CA (occurrence: CA)
  Receive Date: 20130718
  Receipt Date: 20130718
  Transmission Date: 20140515
  Serious: Yes (Death)
  Sender: FDA-Public Use
  Company Number: CHPA2013CA011361

PATIENT
  Sex: Female

DRUGS (2)
  1. TRIAMINIC [Suspect]
     Dosage: UNK, UNK
     Route: 048
  2. PREVACID [Concomitant]

REACTIONS (3)
  - Dementia [Fatal]
  - Dysphagia [Unknown]
  - Mastication disorder [Unknown]
